FAERS Safety Report 17434775 (Version 10)
Quarter: 2021Q2

REPORT INFORMATION
  Report Type: Report from Study
  Country: MX (occurrence: MX)
  Receive Date: 20200219
  Receipt Date: 20210615
  Transmission Date: 20210716
  Serious: Yes (Other)
  Sender: FDA-Public Use
  Company Number: NVSC2020MX042743

PATIENT
  Age: 88 Year
  Sex: Female
  Weight: 47 kg

DRUGS (3)
  1. DIOVAN [Suspect]
     Active Substance: VALSARTAN
     Dosage: UNK
     Route: 065
  2. DIOVAN [Suspect]
     Active Substance: VALSARTAN
     Indication: HYPERTENSION
     Dosage: 160 MG, QD
     Route: 048
     Dates: start: 201912
  3. DIOVAN [Suspect]
     Active Substance: VALSARTAN
     Indication: BLOOD PRESSURE INCREASED
     Dosage: 320 MG, QD
     Route: 048
     Dates: start: 201912

REACTIONS (28)
  - Diarrhoea [Not Recovered/Not Resolved]
  - Lacrimation increased [Unknown]
  - Feeling abnormal [Unknown]
  - Limb discomfort [Unknown]
  - Dyspepsia [Unknown]
  - Crying [Recovered/Resolved]
  - Headache [Unknown]
  - Palpitations [Unknown]
  - Memory impairment [Unknown]
  - Vision blurred [Recovered/Resolved]
  - Syncope [Unknown]
  - Inguinal hernia [Unknown]
  - Diverticular perforation [Unknown]
  - Hypertension [Recovering/Resolving]
  - Fear [Unknown]
  - Malaise [Recovered/Resolved]
  - Nervousness [Recovered/Resolved]
  - Gait disturbance [Recovered/Resolved]
  - Paronychia [Recovered/Resolved]
  - Gait inability [Recovered/Resolved]
  - Discharge [Recovered/Resolved]
  - Anger [Unknown]
  - Nervousness [Unknown]
  - Pain [Unknown]
  - Anxiety [Unknown]
  - Gastritis [Unknown]
  - Dyspnoea [Recovered/Resolved]
  - Abdominal discomfort [Not Recovered/Not Resolved]

NARRATIVE: CASE EVENT DATE: 20201108
